FAERS Safety Report 14093508 (Version 1)
Quarter: 2017Q4

REPORT INFORMATION
  Report Type: Spontaneous
  Country: US (occurrence: None)
  Receive Date: 20171016
  Receipt Date: 20171016
  Transmission Date: 20180321
  Serious: Yes (Hospitalization)
  Sender: FDA-Public Use
  Company Number: None

PATIENT
  Age: 85 Year
  Sex: Male

DRUGS (1)
  1. FERRIC NA GLUCONATE [Suspect]
     Active Substance: SODIUM FERRIC GLUCONATE COMPLEX
     Route: 042
     Dates: start: 20170925, end: 20170925

REACTIONS (4)
  - Abdominal discomfort [None]
  - Loss of consciousness [None]
  - Myalgia [None]
  - Hypotension [None]

NARRATIVE: CASE EVENT DATE: 20170925
